FAERS Safety Report 7291773-1 (Version None)
Quarter: 2011Q1

REPORT INFORMATION
  Report Type: 
  Country: None (occurrence: None)
  Receive Date: 20110214
  Receipt Date: 20110131
  Transmission Date: 20110831
  Serious: Yes (Other)
  Sender: FDA-Public Use
  Company Number: CA-GENENTECH-286135

PATIENT
  Sex: Female

DRUGS (3)
  1. ALVESCO [Concomitant]
     Indication: PRODUCT USED FOR UNKNOWN INDICATION
     Dosage: UNK
  2. OMALIZUMAB [Suspect]
     Indication: ASTHMA
     Dosage: 375 MG, Q2W
     Route: 058
     Dates: start: 20080327
  3. OMALIZUMAB [Suspect]
     Dosage: 375 MG, Q2W
     Route: 058
     Dates: start: 20090622

REACTIONS (11)
  - SNEEZING [None]
  - HEART RATE INCREASED [None]
  - NASOPHARYNGITIS [None]
  - RHINITIS ALLERGIC [None]
  - EYE PAIN [None]
  - UPPER RESPIRATORY TRACT CONGESTION [None]
  - RHINORRHOEA [None]
  - NASAL CONGESTION [None]
  - STRESS [None]
  - HYPERSENSITIVITY [None]
  - HYPERTENSION [None]
